FAERS Safety Report 9433387 (Version 2)
Quarter: 2014Q1

REPORT INFORMATION
  Report Type: Spontaneous
  Country: US (occurrence: US)
  Receive Date: 20130731
  Receipt Date: 20140306
  Transmission Date: 20141002
  Serious: Yes (Disabling)
  Sender: FDA-Public Use
  Company Number: US-009507513-1307USA017068

PATIENT
  Sex: Female
  Weight: 72.56 kg

DRUGS (3)
  1. NUVARING [Suspect]
     Indication: CONTRACEPTION
     Dosage: 0.12-0.015 MG/24 HR, 1 EVERY 3 WEEKS AS DIRECTED, REMOVE FOR 1 WEEK
     Route: 067
     Dates: start: 20061127, end: 20100709
  2. ZOLOFT [Concomitant]
     Indication: ANXIETY DISORDER
     Dosage: 25 MG, QD
  3. ZOLOFT [Concomitant]
     Indication: DEPRESSION

REACTIONS (14)
  - Deep vein thrombosis [Recovering/Resolving]
  - Pain in extremity [Recovering/Resolving]
  - Bronchitis [Unknown]
  - Polymenorrhoea [Unknown]
  - Uterine leiomyoma [Not Recovered/Not Resolved]
  - Road traffic accident [Unknown]
  - Headache [Recovering/Resolving]
  - Back pain [Recovering/Resolving]
  - Urinary tract infection [Not Recovered/Not Resolved]
  - Blood cholesterol increased [Unknown]
  - Pathogen resistance [Unknown]
  - Smear cervix abnormal [Unknown]
  - Cryotherapy [Unknown]
  - Upper respiratory tract infection [Unknown]
